FAERS Safety Report 9729054 (Version 1)
Quarter: 2013Q4

REPORT INFORMATION
  Report Type: Spontaneous
  Country: DE (occurrence: DE)
  Receive Date: 20131204
  Receipt Date: 20131204
  Transmission Date: 20140711
  Serious: Yes (Death, Congenital Anomaly)
  Sender: FDA-Public Use
  Company Number: GXKR2013DE003726

PATIENT
  Sex: 0

DRUGS (6)
  1. PROPOFOL [Suspect]
     Indication: LAPAROSCOPY
     Dosage: UNK UKN, UNK
     Route: 064
     Dates: start: 20080829, end: 20080829
  2. FENTANYL [Suspect]
     Indication: LAPAROSCOPY
     Dosage: UNK UKN, UNK
     Route: 064
     Dates: start: 20080829, end: 20080829
  3. ROCURONIUM BROMIDE [Suspect]
     Indication: LAPAROSCOPY
     Dosage: UNK UKN, UNK
     Route: 064
     Dates: start: 20080829, end: 20080829
  4. AKRINOR [Suspect]
     Indication: LAPAROSCOPY
     Dosage: UNK UKN, UNK
     Route: 064
     Dates: start: 20080829, end: 20080829
  5. METAMIZOLE [Suspect]
     Indication: LAPAROSCOPY
     Dosage: UNK UKN, UNK
     Route: 064
     Dates: start: 20080829, end: 20080829
  6. SALBUTAMOL [Concomitant]
     Indication: ASTHMA
     Route: 064
     Dates: start: 20080721, end: 20081020

REACTIONS (1)
  - Anencephaly [Fatal]
